FAERS Safety Report 5497313-1 (Version None)
Quarter: 2007Q4

REPORT INFORMATION
  Report Type: 
  Country: None (occurrence: None)
  Receive Date: 20071025
  Receipt Date: 20060929
  Transmission Date: 20080405
  Serious: No
  Sender: FDA-Public Use
  Company Number: A0621955A

PATIENT
  Age: 53 Year
  Sex: Female

DRUGS (10)
  1. ADVAIR DISKUS 100/50 [Suspect]
     Indication: ASTHMA
     Dosage: 1PUFF TWICE PER DAY
     Route: 055
  2. ZELNORM [Concomitant]
  3. MORPHINE SULFATE [Concomitant]
  4. CELEBREX [Concomitant]
  5. PREVACID [Concomitant]
  6. VALPROIC ACID [Concomitant]
  7. RHINOCORT [Concomitant]
  8. DIAZEPAM [Concomitant]
  9. FLONASE [Concomitant]
  10. ESTRADIOL [Concomitant]

REACTIONS (13)
  - ABDOMINAL PAIN UPPER [None]
  - ASTHENIA [None]
  - BACK PAIN [None]
  - DYSPNOEA [None]
  - FEELING ABNORMAL [None]
  - ILL-DEFINED DISORDER [None]
  - LETHARGY [None]
  - MALAISE [None]
  - MYOCARDIAL INFARCTION [None]
  - PAIN [None]
  - PRODUCTIVE COUGH [None]
  - RESPIRATION ABNORMAL [None]
  - WHEEZING [None]
